FAERS Safety Report 15324397 (Version 2)
Quarter: 2020Q3

REPORT INFORMATION
  Report Type: Report from Study
  Country: PT (occurrence: PT)
  Receive Date: 20180828
  Receipt Date: 20190712
  Transmission Date: 20201105
  Serious: Yes (Hospitalization)
  Sender: FDA-Public Use
  Company Number: PT-ASTRAZENECA-2016SF04985

PATIENT
  Age: 24480 Day
  Sex: Male

DRUGS (21)
  1. TREMELIMUMAB. [Suspect]
     Active Substance: TREMELIMUMAB
     Indication: NON-SMALL CELL LUNG CANCER
     Dosage: 51.0MG ONCE/SINGLE ADMINISTRATION
     Route: 042
     Dates: start: 20161021, end: 20161021
  2. MEDI4736 [Suspect]
     Active Substance: DURVALUMAB
     Indication: NON-SMALL CELL LUNG CANCER
     Dosage: 1020.0MG ONCE/SINGLE ADMINISTRATION
     Route: 042
     Dates: start: 20160923, end: 20160923
  3. HYDROMORPHONE [Concomitant]
     Active Substance: HYDROMORPHONE
     Indication: PAIN
     Route: 048
     Dates: end: 20160825
  4. FENTANYL. [Concomitant]
     Active Substance: FENTANYL
     Indication: PAIN
     Dosage: 50.0MG AS REQUIRED
     Route: 048
     Dates: start: 20160826, end: 20160922
  5. MEDI4736 [Suspect]
     Active Substance: DURVALUMAB
     Indication: NON-SMALL CELL LUNG CANCER
     Dosage: 1020.0MG ONCE/SINGLE ADMINISTRATION
     Route: 042
     Dates: start: 20161021, end: 20161021
  6. NEBIVOLOL. [Concomitant]
     Active Substance: NEBIVOLOL
     Indication: HYPERTENSION
     Route: 048
  7. ESOMEPRAZOLE. [Concomitant]
     Active Substance: ESOMEPRAZOLE MAGNESIUM
     Indication: GASTROOESOPHAGEAL REFLUX DISEASE
     Route: 048
     Dates: end: 20160906
  8. ACETYLSALICYLIC ACID [Concomitant]
     Active Substance: ASPIRIN
     Indication: PROPHYLAXIS
     Route: 048
  9. ABSTRAL [Concomitant]
     Active Substance: FENTANYL CITRATE
     Indication: PAIN
     Dosage: 100.0MG AS REQUIRED
     Route: 048
     Dates: start: 20160825
  10. HYDROMORPHONE [Concomitant]
     Active Substance: HYDROMORPHONE
     Indication: PAIN
     Route: 048
     Dates: start: 20160826
  11. JURNISTA [Concomitant]
     Active Substance: HYDROMORPHONE HYDROCHLORIDE
     Indication: PAIN
     Dosage: 16.0MG AS REQUIRED
     Route: 048
     Dates: start: 20160825
  12. TREMELIMUMAB. [Suspect]
     Active Substance: TREMELIMUMAB
     Indication: NON-SMALL CELL LUNG CANCER
     Dosage: 51.0MG ONCE/SINGLE ADMINISTRATION
     Route: 042
     Dates: start: 20161219, end: 20161219
  13. FENTANYL. [Concomitant]
     Active Substance: FENTANYL
     Indication: PAIN
     Dosage: 100.0MG AS REQUIRED
     Route: 048
     Dates: end: 20160825
  14. NOLOTIL [Concomitant]
     Indication: PYREXIA
     Dosage: 575.0MG AS REQUIRED
     Route: 048
     Dates: start: 20160825
  15. TREMELIMUMAB. [Suspect]
     Active Substance: TREMELIMUMAB
     Indication: NON-SMALL CELL LUNG CANCER
     Dosage: 51.0MG ONCE/SINGLE ADMINISTRATION
     Route: 042
     Dates: start: 20160826, end: 20160826
  16. MEDI4736 [Suspect]
     Active Substance: DURVALUMAB
     Indication: NON-SMALL CELL LUNG CANCER
     Dosage: 1200.0MG ONCE/SINGLE ADMINISTRATION
     Route: 042
     Dates: start: 20161219, end: 20161219
  17. SIMVASTATIN. [Concomitant]
     Active Substance: SIMVASTATIN
     Indication: BLOOD CHOLESTEROL INCREASED
     Route: 048
     Dates: end: 20160906
  18. LYRICA [Concomitant]
     Active Substance: PREGABALIN
     Indication: PAIN
     Route: 048
     Dates: start: 20160906
  19. MEDI4736 [Suspect]
     Active Substance: DURVALUMAB
     Indication: NON-SMALL CELL LUNG CANCER
     Dosage: 1020.0MG ONCE/SINGLE ADMINISTRATION
     Route: 042
     Dates: start: 20160826, end: 20160826
  20. TREMELIMUMAB. [Suspect]
     Active Substance: TREMELIMUMAB
     Indication: NON-SMALL CELL LUNG CANCER
     Dosage: 51.0MG ONCE/SINGLE ADMINISTRATION
     Route: 042
     Dates: start: 20160923, end: 20160923
  21. PERINDOPRIL [Concomitant]
     Active Substance: PERINDOPRIL
     Indication: HYPERTENSION
     Route: 048

REACTIONS (1)
  - Chest pain [Recovering/Resolving]

NARRATIVE: CASE EVENT DATE: 20160907
